FAERS Safety Report 14555187 (Version 1)
Quarter: 2018Q1

REPORT INFORMATION
  Report Type: Spontaneous
  Country: US (occurrence: US)
  Receive Date: 20180219
  Receipt Date: 20180219
  Transmission Date: 20180509
  Serious: Yes (Other)
  Sender: FDA-Public Use
  Company Number: None

PATIENT
  Age: 23 Year
  Sex: Female
  Weight: 67 kg

DRUGS (1)
  1. INFLIXIMAB [Suspect]
     Active Substance: INFLIXIMAB
     Indication: CROHN^S DISEASE
     Dosage: OTHER FREQUENCY:EVERY 8 WEEKS;?
     Route: 042
     Dates: start: 20180119, end: 20180119

REACTIONS (3)
  - Unevaluable event [None]
  - Skin haemorrhage [None]
  - Skin exfoliation [None]

NARRATIVE: CASE EVENT DATE: 20180119
